FAERS Safety Report 13575110 (Version 1)
Quarter: 2017Q2

REPORT INFORMATION
  Report Type: Report from Study
  Country: US (occurrence: US)
  Receive Date: 20170523
  Receipt Date: 20170523
  Transmission Date: 20170830
  Serious: No
  Sender: FDA-Public Use
  Company Number: PHEH2017US015444

PATIENT
  Age: 65 Year
  Sex: Male

DRUGS (1)
  1. ENTRESTO [Suspect]
     Active Substance: SACUBITRIL\VALSARTAN
     Indication: CARDIAC ARREST
     Dosage: 100 MG, BID
     Route: 048
     Dates: start: 20170421

REACTIONS (2)
  - Product use in unapproved indication [Unknown]
  - Dizziness postural [Unknown]

NARRATIVE: CASE EVENT DATE: 20170505
